FAERS Safety Report 10382544 (Version 2)
Quarter: 2015Q3

REPORT INFORMATION
  Report Type: Spontaneous
  Country: DK (occurrence: DK)
  Receive Date: 20140813
  Receipt Date: 20150914
  Transmission Date: 20151125
  Serious: Yes (Other)
  Sender: FDA-Public Use
  Company Number: PHHY2014DK096015

PATIENT
  Sex: Male

DRUGS (4)
  1. GABAPENTIN. [Suspect]
     Active Substance: GABAPENTIN
     Indication: ARTHRALGIA
     Dosage: 300 MG, TID
     Route: 048
     Dates: start: 20110513, end: 20110815
  2. AMITRIPTYLINE [Suspect]
     Active Substance: AMITRIPTYLINE
     Route: 048
     Dates: start: 20110506, end: 20110802
  3. AMITRIPTYLINE [Suspect]
     Active Substance: AMITRIPTYLINE
     Indication: NEUROLOGICAL INFECTION
     Dosage: 10 MG, UNK
     Route: 048
     Dates: start: 20110506, end: 20110802
  4. GABAPENTIN. [Suspect]
     Active Substance: GABAPENTIN
     Dosage: STARTDOSIS 300MG X 2 DAGLIGT. ?GNING TIL 300 MG 3 GANGE DAGLIG 30MAJ2011
     Route: 048
     Dates: start: 20110513, end: 20110815

REACTIONS (7)
  - Dysgeusia [Not Recovered/Not Resolved]
  - Cataract operation [Recovered/Resolved]
  - Cataract [Recovered/Resolved]
  - Weight increased [Recovered/Resolved]
  - Parosmia [Not Recovered/Not Resolved]
  - Retinal depigmentation [Not Recovered/Not Resolved]
  - Blindness [Not Recovered/Not Resolved]

NARRATIVE: CASE EVENT DATE: 2011
